FAERS Safety Report 19069661 (Version 2)
Quarter: 2021Q2

REPORT INFORMATION
  Report Type: Spontaneous
  Country: TT (occurrence: TT)
  Receive Date: 20210329
  Receipt Date: 20210416
  Transmission Date: 20210717
  Serious: Yes (Other)
  Sender: FDA-Public Use
  Company Number: TT-BAYER-2021-112161

PATIENT
  Age: 34 Year
  Sex: Female

DRUGS (1)
  1. YAZ [Suspect]
     Active Substance: DROSPIRENONE\ETHINYL ESTRADIOL
     Dosage: UNK
     Route: 048

REACTIONS (3)
  - Depressed mood [Recovered/Resolved]
  - Mood swings [Recovered/Resolved]
  - Suicidal ideation [Recovered/Resolved]
